FAERS Safety Report 4515332-6 (Version None)
Quarter: 2004Q4

REPORT INFORMATION
  Report Type: 
  Country: None (occurrence: None)
  Receive Date: 20041126
  Receipt Date: 20041115
  Transmission Date: 20050328
  Serious: No
  Sender: FDA-Public Use
  Company Number: HQWYE740903AUG04

PATIENT
  Age: 55 Year
  Sex: Female
  Weight: 59.02 kg

DRUGS (17)
  1. EFFEXOR [Suspect]
     Indication: DEPRESSION
     Dosage: SEE IMAGE
     Dates: end: 20040601
  2. EFFEXOR [Suspect]
     Indication: DEPRESSION
     Dosage: SEE IMAGE
     Dates: start: 20040101
  3. DEPAKOTE [Suspect]
     Indication: AFFECTIVE DISORDER
     Dosage: 500 MG
  4. DEXEDRINE [Suspect]
     Indication: NARCOLEPSY
     Dosage: SIX (5 MG) TABS MORNING AND AFTERNOON
  5. EFFEXOR [Suspect]
     Indication: DEPRESSION
     Dosage: 100 MG 3 X PER 1 DAY, ORAL
     Route: 048
     Dates: start: 20040601, end: 20040101
  6. GEODON [Suspect]
     Indication: DEPRESSION
     Dosage: SEE IMAGE
     Dates: start: 20040701, end: 20040101
  7. GEODON [Suspect]
     Indication: DEPRESSION
     Dosage: SEE IMAGE
     Dates: end: 20040601
  8. GEODON [Suspect]
     Indication: DEPRESSION
     Dosage: SEE IMAGE
     Dates: start: 20040601, end: 20040701
  9. GEODON [Suspect]
     Indication: DEPRESSION
     Dosage: SEE IMAGE
     Dates: start: 20040101
  10. KLONOPIN [Suspect]
     Indication: ANXIETY
     Dosage: 0.5 MG IN THE AFTERNOON, 1 MG HS
  11. REMERON [Suspect]
     Indication: DEPRESSION
     Dosage: SEE IMAGE
     Dates: start: 20040601, end: 20040101
  12. REMERON [Suspect]
     Indication: DEPRESSION
     Dosage: SEE IMAGE
     Dates: end: 20040601
  13. REMERON [Suspect]
     Indication: DEPRESSION
     Dosage: SEE IMAGE
     Dates: start: 20040101
  14. RITALIN [Suspect]
     Indication: NARCOLEPSY
  15. ZOLOFT [Suspect]
     Indication: ANXIETY
     Dosage: 100 MG
     Dates: start: 20040101, end: 20040101
  16. ZOLOFT [Suspect]
     Indication: MOOD SWINGS
     Dosage: 100 MG
     Dates: start: 20040101, end: 20040101
  17. ZOLOFT [Suspect]
     Indication: PANIC ATTACK
     Dosage: 100 MG
     Dates: start: 20040101, end: 20040101

REACTIONS (22)
  - AGITATION [None]
  - ALOPECIA [None]
  - ANHEDONIA [None]
  - ANXIETY [None]
  - CONFUSIONAL STATE [None]
  - CRYING [None]
  - DEPRESSION [None]
  - DIARRHOEA [None]
  - DISEASE RECURRENCE [None]
  - DISTURBANCE IN ATTENTION [None]
  - DRUG WITHDRAWAL SYNDROME [None]
  - FATIGUE [None]
  - HEADACHE [None]
  - HYPERHIDROSIS [None]
  - IRRITABILITY [None]
  - MIDDLE INSOMNIA [None]
  - MOOD SWINGS [None]
  - OVERDOSE [None]
  - PANIC ATTACK [None]
  - SEROTONIN SYNDROME [None]
  - SOCIAL AVOIDANT BEHAVIOUR [None]
  - SUICIDAL IDEATION [None]
